FAERS Safety Report 19907596 (Version 2)
Quarter: 2021Q4

REPORT INFORMATION
  Report Type: Spontaneous
  Country: US (occurrence: US)
  Receive Date: 20211001
  Receipt Date: 20211025
  Transmission Date: 20220303
  Serious: Yes (Hospitalization)
  Sender: FDA-Public Use
  Company Number: US-VYERA PHARMACEUTICALS, LLC-2021VYE00038

PATIENT
  Sex: Male
  Weight: 65.76 kg

DRUGS (9)
  1. DARAPRIM [Suspect]
     Active Substance: PYRIMETHAMINE
     Indication: Cerebral toxoplasmosis
     Dosage: 75 MG, 1X/DAY
     Route: 048
     Dates: start: 202108
  2. VALGANCICLOVIR [Suspect]
     Active Substance: VALGANCICLOVIR
     Dosage: 900 MG, 2X/DAY
     Route: 048
  3. VALGANCICLOVIR [Suspect]
     Active Substance: VALGANCICLOVIR
     Dosage: 1800 MG, 1X/DAY MORNING
     Route: 048
  4. BIKTARVY [Suspect]
     Active Substance: BICTEGRAVIR SODIUM\EMTRICITABINE\TENOFOVIR ALAFENAMIDE FUMARATE
     Dosage: 1 TABLETS, 1X/DAY
  5. PANTOPRAZOLE [Suspect]
     Active Substance: PANTOPRAZOLE
     Dosage: 1 DOSAGE FORM, 1X/DAY IN THE MORNING
  6. SULFADIAZINE [Suspect]
     Active Substance: SULFADIAZINE
     Dosage: 1500 MG, 4X/DAY
     Route: 048
  7. SULFADIAZINE [Suspect]
     Active Substance: SULFADIAZINE
     Dosage: 6000 MG, 1X/DAY MORNING
     Route: 048
  8. LEUCOVORIN [Suspect]
     Active Substance: LEUCOVORIN
     Dosage: 25 MG, 1X/DAY
  9. AZITHROMYCIN ANHYDROUS [Suspect]
     Active Substance: AZITHROMYCIN ANHYDROUS
     Dosage: 1200 MG, 1X/WEEK

REACTIONS (5)
  - Cerebral disorder [Unknown]
  - Nausea [Not Recovered/Not Resolved]
  - Vomiting [Recovered/Resolved]
  - Abdominal discomfort [Not Recovered/Not Resolved]
  - Product administration error [Unknown]

NARRATIVE: CASE EVENT DATE: 20210101
